FAERS Safety Report 5209919-5 (Version None)
Quarter: 2006Q4

REPORT INFORMATION
  Report Type: 
  Country: None (occurrence: None)
  Receive Date: 20061130
  Receipt Date: 20061130
  Transmission Date: 20070319
  Serious: Yes (Hospitalization)
  Sender: FDA-Public Use
  Company Number: 2005147623

PATIENT
  Age: 65 Year
  Sex: Female
  Weight: 104.7809 kg

DRUGS (15)
  1. ZYVOX [Suspect]
     Indication: CELLULITIS
     Dosage: 1200 MG (600 MG, BID), INTRAVENOUS
     Route: 042
     Dates: start: 20051010, end: 20051014
  2. NPH INSULIN [Concomitant]
  3. INSULIN [Concomitant]
  4. ALL OTHER THERAPEUTIC PRODUCTS (ALL OTHER THERAPEUTIC PRODUCTS) [Concomitant]
  5. LASIX [Concomitant]
  6. EXTRA STRENGTH TYLENOL [Concomitant]
  7. PREDNISONE TAB [Concomitant]
  8. LIPITOR [Concomitant]
  9. PHOSLO (CALICUM ACETATE) [Concomitant]
  10. ASA (ACETYLSALICYLIA ACID) [Concomitant]
  11. VITAMIN B6 [Concomitant]
  12. VITAMIN C (VITAMIN C) [Concomitant]
  13. HYDRALAZINE HCL [Concomitant]
  14. ACTOS [Concomitant]
  15. DUONEB [Concomitant]

REACTIONS (1)
  - BLOOD CREATININE INCREASED [None]
